FAERS Safety Report 25546581 (Version 3)
Quarter: 2025Q4

REPORT INFORMATION
  Report Type: Report from Study
  Country: US (occurrence: US)
  Receive Date: 20250713
  Receipt Date: 20251023
  Transmission Date: 20260117
  Serious: Yes (Other)
  Sender: ABBVIE
  Company Number: US-ABBVIE-6205414

PATIENT
  Age: 67 Year
  Sex: Female

DRUGS (1)
  1. SKYRIZI [Suspect]
     Active Substance: RISANKIZUMAB-RZAA
     Indication: Crohn^s disease
     Route: 042
     Dates: start: 20250131

REACTIONS (6)
  - Intestinal haemorrhage [Not Recovered/Not Resolved]
  - Asthma [Recovering/Resolving]
  - Crohn^s disease [Recovered/Resolved]
  - Haematochezia [Unknown]
  - Therapeutic response shortened [Unknown]
  - Enzyme level increased [Recovered/Resolved]

NARRATIVE: CASE EVENT DATE: 20250101
